FAERS Safety Report 11737772 (Version 8)
Quarter: 2018Q2

REPORT INFORMATION
  Report Type: Spontaneous
  Country: US (occurrence: US)
  Receive Date: 20151113
  Receipt Date: 20180416
  Transmission Date: 20180711
  Serious: Yes (Hospitalization, Congenital Anomaly, Other)
  Sender: FDA-Public Use
  Company Number: PHEH2015US023524

PATIENT
  Sex: Male

DRUGS (4)
  1. ONDANSETRON DR REDDY [Suspect]
     Active Substance: ONDANSETRON
     Indication: FOETAL EXPOSURE DURING PREGNANCY
     Dosage: MOTHER^S DOSE: 8 MG, BID
     Route: 064
  2. ONDANSETRON HYDROCHLORIDE. [Suspect]
     Active Substance: ONDANSETRON HYDROCHLORIDE
     Indication: FOETAL EXPOSURE DURING PREGNANCY
     Route: 064
  3. ZOFRAN [Suspect]
     Active Substance: ONDANSETRON HYDROCHLORIDE
     Indication: FOETAL EXPOSURE DURING PREGNANCY
     Route: 064
  4. PROGESTERONE. [Concomitant]
     Active Substance: PROGESTERONE
     Indication: FOETAL EXPOSURE DURING PREGNANCY
     Dosage: MOTHER DOSE: 200 MG, UNK
     Route: 064

REACTIONS (37)
  - Syringomyelia [Unknown]
  - Gastroenteritis viral [Unknown]
  - Dyspnoea [Unknown]
  - Hypoglycaemia [Unknown]
  - Sinus arrhythmia [Unknown]
  - Constipation [Unknown]
  - Jaundice [Unknown]
  - Quality of life decreased [Unknown]
  - Bronchial hyperreactivity [Unknown]
  - Cardiac murmur [Unknown]
  - Right aortic arch [Unknown]
  - Sepsis [Unknown]
  - Vomiting [Unknown]
  - Congenital anomaly [Unknown]
  - Anomalous pulmonary venous connection [Unknown]
  - Left-to-right cardiac shunt [Unknown]
  - Anxiety [Unknown]
  - Heart disease congenital [Unknown]
  - Foetal exposure during pregnancy [Unknown]
  - Choking [Unknown]
  - Tricuspid valve incompetence [Unknown]
  - Right ventricular dilatation [Unknown]
  - Gastrooesophageal reflux disease [Unknown]
  - Chest pain [Unknown]
  - Asthma [Unknown]
  - DiGeorge^s syndrome [Unknown]
  - Patent ductus arteriosus [Unknown]
  - Respiratory distress [Unknown]
  - Injury [Unknown]
  - Emotional distress [Unknown]
  - Rhinitis allergic [Unknown]
  - Atrial septal defect [Unknown]
  - Dehydration [Unknown]
  - Pneumonia [Unknown]
  - Right atrial dilatation [Unknown]
  - Pain [Unknown]
  - Anhedonia [Unknown]
